FAERS Safety Report 13658351 (Version 1)
Quarter: 2017Q2

REPORT INFORMATION
  Report Type: Report from Study
  Country: US (occurrence: US)
  Receive Date: 20170616
  Receipt Date: 20170616
  Transmission Date: 20170830
  Serious: Yes (Death, Hospitalization)
  Sender: FDA-Public Use
  Company Number: US-TORRENT-00003096

PATIENT
  Age: 20 Year
  Sex: Female

DRUGS (4)
  1. ALCOHOL. [Suspect]
     Active Substance: ALCOHOL
  2. HEROIN [Suspect]
     Active Substance: DIAMORPHINE
  3. TOPIRAMATE. [Suspect]
     Active Substance: TOPIRAMATE
  4. QUETIAPINE. [Suspect]
     Active Substance: QUETIAPINE

REACTIONS (13)
  - Hypotension [Unknown]
  - Unresponsive to stimuli [None]
  - Toxicity to various agents [Fatal]
  - Lethargy [Unknown]
  - Hypothermia [Unknown]
  - Malaise [Unknown]
  - Seizure [Unknown]
  - Brain oedema [None]
  - Brain herniation [None]
  - Metabolic acidosis [Unknown]
  - Haemodynamic instability [None]
  - Completed suicide [Fatal]
  - Apnoea [Unknown]
